FAERS Safety Report 5577093-1 (Version None)
Quarter: 2007Q4

REPORT INFORMATION
  Report Type: 
  Country: None (occurrence: None)
  Receive Date: 20071228
  Receipt Date: 20071221
  Transmission Date: 20080405
  Serious: Yes (Hospitalization)
  Sender: FDA-Public Use
  Company Number: JP-ABBOTT-07P-087-0362292-00

PATIENT
  Sex: Male

DRUGS (20)
  1. NORVIR [Suspect]
     Indication: HIV INFECTION
     Route: 048
     Dates: start: 20050803
  2. LAMIVUDINE [Suspect]
     Indication: HIV INFECTION
     Route: 048
     Dates: start: 20050111
  3. LAMIVUDINE [Suspect]
     Dates: start: 20050803, end: 20060331
  4. STAVUDINE [Suspect]
     Indication: HIV INFECTION
     Route: 048
     Dates: start: 20050111, end: 20050518
  5. STAVUDINE [Suspect]
     Dates: start: 20050803, end: 20060331
  6. FOSAMPRENAVIR CALCIUM HYDRATE [Suspect]
     Indication: HIV INFECTION
     Route: 048
     Dates: start: 20050803
  7. VALGANCICLOVIR HCL [Concomitant]
     Indication: CYTOMEGALOVIRUS CHORIORETINITIS
     Route: 048
     Dates: start: 20050401, end: 20050613
  8. VALGANCICLOVIR HCL [Concomitant]
  9. BACTRIM [Concomitant]
     Indication: ANTIFUNGAL PROPHYLAXIS
     Route: 048
     Dates: start: 20050614, end: 20060331
  10. SENNA [Concomitant]
     Indication: CONSTIPATION PROPHYLAXIS
     Route: 048
     Dates: start: 20050803, end: 20060331
  11. LANSOPRAZOLE [Concomitant]
     Indication: GASTRITIS
     Route: 048
     Dates: start: 20050803, end: 20060331
  12. MICAFUNGIN SODIUM [Concomitant]
     Indication: ORAL CANDIDIASIS
     Route: 042
     Dates: start: 20050803, end: 20050920
  13. FLUCONAZOLE [Concomitant]
     Indication: ANTIFUNGAL PROPHYLAXIS
     Route: 048
     Dates: start: 20050922
  14. ETHAMBUTOL HYDROCHLORIDE [Concomitant]
     Indication: MYCOBACTERIA TEST
     Dates: start: 20050803
  15. AMIKACIN SULFATE [Concomitant]
     Indication: DRUG USE FOR UNKNOWN INDICATION
     Dates: start: 20050803, end: 20050920
  16. YODEL-S [Concomitant]
     Indication: DRUG USE FOR UNKNOWN INDICATION
  17. EFAVIRENZ [Concomitant]
     Indication: DRUG USE FOR UNKNOWN INDICATION
  18. TRUVADA [Concomitant]
     Indication: DRUG USE FOR UNKNOWN INDICATION
  19. BACTRIM [Concomitant]
     Indication: DRUG USE FOR UNKNOWN INDICATION
  20. UNKNOWN [Concomitant]
     Indication: DRUG USE FOR UNKNOWN INDICATION
     Dates: start: 20050803, end: 20060331

REACTIONS (9)
  - ATYPICAL MYCOBACTERIAL INFECTION [None]
  - CYTOMEGALOVIRUS CHORIORETINITIS [None]
  - CYTOMEGALOVIRUS VIRAEMIA [None]
  - GASTRITIS [None]
  - IMMUNE RECONSTITUTION SYNDROME [None]
  - IRON DEFICIENCY ANAEMIA [None]
  - MYCOBACTERIUM AVIUM COMPLEX IMMUNE RESTORATION DISEASE [None]
  - NUTRITIONAL CONDITION ABNORMAL [None]
  - ORAL CANDIDIASIS [None]
